FAERS Safety Report 7137135-9 (Version None)
Quarter: 2010Q4

REPORT INFORMATION
  Report Type: 
  Country: None (occurrence: None)
  Receive Date: 20101206
  Receipt Date: 20070529
  Transmission Date: 20110411
  Serious: Yes (Death)
  Sender: FDA-Public Use
  Company Number: US-ACTELION-A-US2007-16297

PATIENT

DRUGS (11)
  1. ILOPROST INHALATION SOLUTION 5UG US [Suspect]
     Indication: COR PULMONALE CHRONIC
     Dosage: 5 UG, 6 X DAY
     Route: 055
     Dates: start: 20070326
  2. FLOVENT [Concomitant]
  3. MULTI-VITAMIN [Concomitant]
  4. ALBUTEROL [Concomitant]
  5. LEVAQUIN [Concomitant]
  6. AUGMENTIN [Concomitant]
  7. CELEBREX [Concomitant]
  8. MEGACE [Concomitant]
  9. OXYCODONE HCL [Concomitant]
  10. NOXAFIL [Concomitant]
  11. PREDNISONE [Concomitant]

REACTIONS (1)
  - DEATH [None]
